FAERS Safety Report 13565438 (Version 2)
Quarter: 2017Q2

REPORT INFORMATION
  Report Type: Report from Study
  Country: US (occurrence: US)
  Receive Date: 20170519
  Receipt Date: 20170524
  Transmission Date: 20170830
  Serious: Yes (Hospitalization)
  Sender: FDA-Public Use
  Company Number: US-VIFOR (INTERNATIONAL) INC.-VIT-2017-05419

PATIENT
  Sex: Female

DRUGS (14)
  1. VELTASSA [Suspect]
     Active Substance: PATIROMER
     Indication: HYPERKALAEMIA
     Route: 048
     Dates: start: 20160719
  2. ALENDRONATE [Concomitant]
     Active Substance: ALENDRONATE SODIUM
  3. GABAPENTIN. [Concomitant]
     Active Substance: GABAPENTIN
  4. TELMISARTAN. [Concomitant]
     Active Substance: TELMISARTAN
  5. JANUVIA [Concomitant]
     Active Substance: SITAGLIPTIN PHOSPHATE
  6. ATORVASTATIN [Concomitant]
     Active Substance: ATORVASTATIN
  7. HUMALOG [Concomitant]
     Active Substance: INSULIN LISPRO
  8. DONEPEZIL. [Concomitant]
     Active Substance: DONEPEZIL
  9. OMEPRAZOLE. [Concomitant]
     Active Substance: OMEPRAZOLE
  10. MOMETASONE [Concomitant]
     Active Substance: MOMETASONE
  11. GLIPIZIDE. [Concomitant]
     Active Substance: GLIPIZIDE
  12. METOPROLOL. [Concomitant]
     Active Substance: METOPROLOL
  13. ASPIRIN. [Concomitant]
     Active Substance: ASPIRIN
  14. LANTUS [Concomitant]
     Active Substance: INSULIN GLARGINE

REACTIONS (2)
  - Multiple fractures [Not Recovered/Not Resolved]
  - Adverse event [Not Recovered/Not Resolved]
